FAERS Safety Report 6252007-X (Version None)
Quarter: 2009Q2

REPORT INFORMATION
  Report Type: 
  Country: None (occurrence: None)
  Receive Date: 20090630
  Receipt Date: 20040920
  Transmission Date: 20091009
  Serious: Yes (Hospitalization)
  Sender: FDA-Public Use
  Company Number: US-ROCHE-638540

PATIENT
  Sex: Female

DRUGS (11)
  1. ENFUVIRTIDE [Suspect]
     Route: 065
     Dates: start: 20040426, end: 20060601
  2. ENFUVIRTIDE [Suspect]
     Route: 065
     Dates: start: 20060901, end: 20070816
  3. EPIVIR [Concomitant]
     Dosage: FREQUENCY REPORTED AS QD
     Dates: start: 20021024, end: 20040830
  4. ZERIT [Concomitant]
     Dosage: FREQUENCY REPORTED AS QD
     Dates: start: 20021024, end: 20040830
  5. NORVIR [Concomitant]
     Dosage: FREQUENCY REPORTED AS QD
     Dates: start: 20040426, end: 20040514
  6. REYATAZ [Concomitant]
     Dosage: FREQUENCY REPORTED AS QD
     Dates: start: 20040426, end: 20050909
  7. INVIRASE [Concomitant]
     Dates: start: 20040602
  8. INVIRASE [Concomitant]
     Dosage: FREQUENCY REPORTED AS QD
     Dates: end: 20050121
  9. ACYCLOVIR [Concomitant]
     Dates: start: 20040514, end: 20040101
  10. MEPRON [Concomitant]
     Dosage: FREQUENCY REPORTED AS QD
     Dates: start: 20040602, end: 20040830
  11. SPORANOX [Concomitant]
     Dosage: FREQUENCY REPORTED AS QD
     Dates: start: 20040602, end: 20040101

REACTIONS (1)
  - GASTRITIS [None]
